FAERS Safety Report 4352245-7 (Version None)
Quarter: 2004Q2

REPORT INFORMATION
  Report Type: 
  Country: None (occurrence: None)
  Receive Date: 20040427
  Receipt Date: 20040220
  Transmission Date: 20050107
  Serious: Yes (Hospitalization)
  Sender: FDA-Public Use
  Company Number: 359615

PATIENT
  Age: 63 Year
  Sex: Male

DRUGS (12)
  1. VALGANICICLOVIR (VALGANICICLOVIR) [Suspect]
     Indication: ANTIVIRAL PROPHYLAXIS
     Dosage: 450 MG 2 PER DAY ORAL
     Route: 048
     Dates: start: 20040206
  2. LEVAQUIN [Concomitant]
  3. FLUCONAZOLE [Concomitant]
  4. VIT D (CHOLECALCIFEROL) [Concomitant]
  5. AUGMENTIN [Concomitant]
  6. PEPCID [Concomitant]
  7. TOPROL-XL [Concomitant]
  8. NORVASC [Concomitant]
  9. G-CSF (GRANULOCYTE COLONY STIMULATING FACTOR) [Concomitant]
  10. PROCRIT (EPOETIN ALFA) [Concomitant]
  11. LOVENOX [Concomitant]
  12. HYPER C-VAD (CYCLOPHOSPHAMIDE/DEXAMETHASONE/DOXORUBICIN/VINCRISTINE) [Concomitant]

REACTIONS (1)
  - FATIGUE [None]
